FAERS Safety Report 6698338-0 (Version None)
Quarter: 2010Q2

REPORT INFORMATION
  Report Type: 
  Country: None (occurrence: None)
  Receive Date: 20100427
  Receipt Date: 20100422
  Transmission Date: 20101027
  Serious: Yes (Other)
  Sender: FDA-Public Use
  Company Number: US-SANOFI-AVENTIS-2010SA023466

PATIENT
  Age: 74 Year
  Sex: Male

DRUGS (13)
  1. PLAVIX [Suspect]
     Indication: CORONARY ARTERY BYPASS
     Route: 048
     Dates: start: 20090301, end: 20100302
  2. PLAVIX [Suspect]
     Route: 048
     Dates: start: 20090301
  3. ASPIRIN [Concomitant]
     Dates: start: 20090301
  4. ASPIRIN [Concomitant]
     Dates: start: 20090101
  5. SOTALOL HCL [Concomitant]
     Indication: ATRIAL FIBRILLATION
  6. VALSARTAN [Concomitant]
     Indication: HYPERTENSION
  7. BUSPAR [Concomitant]
  8. ALLOPURINOL [Concomitant]
  9. SIMVASTATIN [Concomitant]
  10. ALENDRONATE SODIUM [Concomitant]
     Indication: OSTEOPOROSIS
  11. ZYRTEC [Concomitant]
     Indication: SEASONAL ALLERGY
  12. FLUTICASONE PROPIONATE [Concomitant]
     Indication: SEASONAL ALLERGY
  13. OMEPRAZOLE [Concomitant]
     Dates: end: 20100401

REACTIONS (11)
  - ASTHENIA [None]
  - CORONARY ARTERY OCCLUSION [None]
  - DIVERTICULITIS [None]
  - DYSPNOEA [None]
  - FATIGUE [None]
  - GASTRITIS [None]
  - GASTRITIS EROSIVE [None]
  - HAEMOGLOBIN DECREASED [None]
  - HAEMORRHOIDS [None]
  - INBORN ERROR OF METABOLISM [None]
  - NODULE [None]
